FAERS Safety Report 8096816-3 (Version None)
Quarter: 2012Q1

REPORT INFORMATION
  Report Type: 
  Country: None (occurrence: None)
  Receive Date: 20120129
  Receipt Date: 20111202
  Transmission Date: 20120608
  Serious: No
  Sender: FDA-Public Use
  Company Number: US-ABBOTT-11P-163-0880418-00

PATIENT
  Sex: Female
  Weight: 68.1 kg

DRUGS (3)
  1. CYMBALTA [Concomitant]
     Indication: ANXIETY
  2. HUMIRA [Suspect]
     Indication: CROHN'S DISEASE
     Dates: start: 20111201, end: 20111201
  3. ASACOL [Concomitant]
     Indication: CROHN'S DISEASE

REACTIONS (1)
  - INJECTION SITE PAIN [None]
